FAERS Safety Report 4902329-7 (Version None)
Quarter: 2006Q1

REPORT INFORMATION
  Report Type: 
  Country: None (occurrence: None)
  Receive Date: 20060202
  Receipt Date: 20060119
  Transmission Date: 20060701
  Serious: Yes (Hospitalization)
  Sender: FDA-Public Use
  Company Number: GBR-2006-0002077

PATIENT
  Age: 34 Year
  Sex: Female

DRUGS (4)
  1. SEVREDOL ORAL SOLUTION (MORPHINE SULFATE) ORAL SOLUTION [Suspect]
     Dosage: ORAL
     Route: 048
     Dates: start: 20050923, end: 20051003
  2. CLONAZEPAM [Suspect]
     Indication: FACIAL NEURALGIA
     Dosage: 1.5 MG, DAILY, ORAL
     Route: 048
     Dates: start: 20050923, end: 20051003
  3. NEURONTIN [Concomitant]
  4. CORTICOSTEROIDS [Concomitant]

REACTIONS (5)
  - ELECTROENCEPHALOGRAM ABNORMAL [None]
  - ENCEPHALITIS VIRAL [None]
  - HERPES ZOSTER [None]
  - LOSS OF CONSCIOUSNESS [None]
  - VASCULITIS [None]
